FAERS Safety Report 4972624-4 (Version None)
Quarter: 2006Q1

REPORT INFORMATION
  Report Type: 
  Country: None (occurrence: None)
  Receive Date: 20060216
  Receipt Date: 20051115
  Transmission Date: 20060701
  Serious: No
  Sender: FDA-Public Use
  Company Number: TPA2005A01490

PATIENT
  Age: 55 Year
  Sex: Female
  Weight: 73.4827 kg

DRUGS (9)
  1. ROZEREM [Suspect]
     Indication: INSOMNIA
     Dosage: 8 MG, HS, PER ORAL
     Route: 048
     Dates: start: 20051107
  2. CARDIZEM CD [Concomitant]
  3. NEURONTIN [Concomitant]
  4. CELEBREX [Concomitant]
  5. LIPITOR [Concomitant]
  6. LEVOTHROID [Concomitant]
  7. PREMARIN [Concomitant]
  8. CYMBALTA (ARICLAIM) [Concomitant]
  9. ZYRTEC [Concomitant]

REACTIONS (3)
  - DIZZINESS [None]
  - NAUSEA [None]
  - SOMNOLENCE [None]
